FAERS Safety Report 23981362 (Version 1)
Quarter: 2024Q2

REPORT INFORMATION
  Report Type: Spontaneous
  Country: US (occurrence: None)
  Receive Date: 20240614
  Receipt Date: 20240614
  Transmission Date: 20240716
  Serious: Yes (Life-Threatening)
  Sender: FDA-Public Use
  Company Number: None

PATIENT
  Age: 52 Year
  Sex: Female

DRUGS (1)
  1. BENZOCAINE [Suspect]
     Active Substance: BENZOCAINE
     Dates: start: 20240529, end: 20240529

REACTIONS (5)
  - Hypoxia [None]
  - Oxygen saturation decreased [None]
  - Cyanosis [None]
  - Pulmonary embolism [None]
  - Methaemoglobinaemia [None]

NARRATIVE: CASE EVENT DATE: 20240529
